FAERS Safety Report 15934491 (Version 8)
Quarter: 2019Q3

REPORT INFORMATION
  Report Type: Report from Study
  Country: KR (occurrence: KR)
  Receive Date: 20190207
  Receipt Date: 20190814
  Transmission Date: 20191004
  Serious: Yes (Hospitalization)
  Sender: FDA-Public Use
  Company Number: KR-B.I. PHARMACEUTICALS,INC./RIDGEFIELD-2019-BI-004695

PATIENT
  Age: 52 Year
  Sex: Male

DRUGS (2)
  1. GILOTRIF [Suspect]
     Active Substance: AFATINIB
     Indication: NON-SMALL CELL LUNG CANCER
     Route: 048
     Dates: start: 20190117
  2. GILOTRIF [Suspect]
     Active Substance: AFATINIB
     Route: 048
     Dates: start: 20190207, end: 201905

REACTIONS (7)
  - Rash [Recovering/Resolving]
  - Skin discolouration [Recovering/Resolving]
  - Diarrhoea [Recovering/Resolving]
  - Anal abscess [Recovering/Resolving]
  - Dizziness [Recovering/Resolving]
  - Stomatitis [Recovering/Resolving]
  - Nasal mucosal disorder [Recovering/Resolving]

NARRATIVE: CASE EVENT DATE: 201901
